FAERS Safety Report 17806926 (Version 1)
Quarter: 2020Q2

REPORT INFORMATION
  Report Type: Spontaneous
  Country: US (occurrence: US)
  Receive Date: 20200520
  Receipt Date: 20200520
  Transmission Date: 20200714
  Serious: No
  Sender: FDA-Public Use
  Company Number: US-PFIZER INC-2020056549

PATIENT
  Age: 48 Year
  Sex: Female
  Weight: 82.09 kg

DRUGS (1)
  1. LYRICA [Suspect]
     Active Substance: PREGABALIN
     Indication: SEIZURE
     Dosage: 50 MG, 3X/DAY
     Dates: start: 2019

REACTIONS (3)
  - Confusional state [Unknown]
  - Muscle twitching [Unknown]
  - Hypoaesthesia [Unknown]
